FAERS Safety Report 22144223 (Version 1)
Quarter: 2023Q1

REPORT INFORMATION
  Report Type: Spontaneous
  Country: US (occurrence: US)
  Receive Date: 20230328
  Receipt Date: 20230328
  Transmission Date: 20230417
  Serious: Yes (Other)
  Sender: FDA-Public Use
  Company Number: US-GSKCCFUS-Case-01660204_AE-93699

PATIENT
  Sex: Male

DRUGS (2)
  1. VALTREX [Suspect]
     Active Substance: VALACYCLOVIR HYDROCHLORIDE
     Indication: Product used for unknown indication
     Dosage: 2 DF, BID
  2. VALACYCLOVIR [Suspect]
     Active Substance: VALACYCLOVIR HYDROCHLORIDE
     Indication: Product used for unknown indication
     Dosage: 2 DF, BID

REACTIONS (11)
  - Hallucination [Unknown]
  - Chest pain [Unknown]
  - Panic attack [Unknown]
  - Anxiety [Unknown]
  - Eye irritation [Unknown]
  - Disturbance in attention [Unknown]
  - Tinnitus [Unknown]
  - Visual impairment [Unknown]
  - Headache [Unknown]
  - Nervous system disorder [Unknown]
  - Malaise [Unknown]
